FAERS Safety Report 19846699 (Version 1)
Quarter: 2021Q3

REPORT INFORMATION
  Report Type: Spontaneous
  Country: US (occurrence: US)
  Receive Date: 20210915
  Receipt Date: 20210915
  Transmission Date: 20211014
  Serious: Yes (Hospitalization)
  Sender: FDA-Public Use
  Company Number: None

PATIENT
  Sex: Female
  Weight: 127.3 kg

DRUGS (6)
  1. VINCRISTINE SULFATE. [Suspect]
     Active Substance: VINCRISTINE SULFATE
     Dates: end: 20210903
  2. CYTARABINE. [Suspect]
     Active Substance: CYTARABINE
     Dates: end: 20210813
  3. PREDNISOLONE. [Suspect]
     Active Substance: PREDNISOLONE
     Indication: PRODUCT USED FOR UNKNOWN INDICATION
     Dates: end: 20210908
  4. DAUNORUBICIN [Suspect]
     Active Substance: DAUNORUBICIN
     Dates: end: 20210903
  5. ONCASPAR [Suspect]
     Active Substance: PEGASPARGASE
     Dates: end: 20210816
  6. METHOTREXATE. [Suspect]
     Active Substance: METHOTREXATE
     Indication: SEPTIC SHOCK
     Dates: end: 20210820

REACTIONS (8)
  - Hypotension [None]
  - Septic shock [None]
  - Alanine aminotransferase increased [None]
  - Blood bilirubin increased [None]
  - Febrile neutropenia [None]
  - Supraventricular tachycardia [None]
  - Aspartate aminotransferase increased [None]
  - Left ventricular dysfunction [None]

NARRATIVE: CASE EVENT DATE: 20210909
